FAERS Safety Report 6935139-X (Version None)
Quarter: 2010Q3

REPORT INFORMATION
  Report Type: 
  Country: None (occurrence: None)
  Receive Date: 20100822
  Receipt Date: 20100813
  Transmission Date: 20110219
  Serious: Yes (Death, Hospitalization)
  Sender: FDA-Public Use
  Company Number: PHHY2010BR54071

PATIENT
  Age: 65 Year
  Sex: Female

DRUGS (1)
  1. ZOMETA [Suspect]

REACTIONS (11)
  - ANAEMIA [None]
  - ANAL FISSURE [None]
  - BLOOD PRESSURE DECREASED [None]
  - CONSTIPATION [None]
  - DEATH [None]
  - DIARRHOEA [None]
  - DYSPNOEA [None]
  - DYSSTASIA [None]
  - FAECES HARD [None]
  - OEDEMA PERIPHERAL [None]
  - VAGINAL LACERATION [None]
